FAERS Safety Report 6997594-9 (Version None)
Quarter: 2010Q3

REPORT INFORMATION
  Report Type: 
  Country: None (occurrence: None)
  Receive Date: 20100918
  Receipt Date: 20091022
  Transmission Date: 20110219
  Serious: No
  Sender: FDA-Public Use
  Company Number: US-WYE-H11857509

PATIENT
  Sex: Male

DRUGS (6)
  1. PRISTIQ [Suspect]
     Indication: DEPRESSION
     Route: 048
     Dates: start: 20091008
  2. OXYCODONE HCL [Interacting]
     Dosage: UNKNOWN
     Dates: start: 20091022
  3. LEVOTHYROXINE [Concomitant]
  4. FELODIPINE [Concomitant]
  5. DOXAZOSIN MESYLATE [Concomitant]
  6. SIMVASTATIN [Concomitant]

REACTIONS (3)
  - DIZZINESS [None]
  - DRUG INTERACTION [None]
  - NERVOUSNESS [None]
